FAERS Safety Report 12719976 (Version 7)
Quarter: 2017Q4

REPORT INFORMATION
  Report Type: Report from Study
  Country: CN (occurrence: CN)
  Receive Date: 20160907
  Receipt Date: 20171127
  Transmission Date: 20180320
  Serious: Yes (Hospitalization)
  Sender: FDA-Public Use
  Company Number: CN-ROCHE-1823063

PATIENT
  Age: 65 Year
  Sex: Male
  Weight: 67 kg

DRUGS (33)
  1. FILGRASTIM [Concomitant]
     Active Substance: FILGRASTIM
     Indication: LYMPHOCYTE COUNT DECREASED
  2. MAGNESIUM ISOGLYCYRRHIZINATE [Concomitant]
     Active Substance: MAGNESIUM ISOGLYCYRRHIZINATE
     Indication: ALANINE AMINOTRANSFERASE INCREASED
     Route: 065
     Dates: start: 20160829, end: 20160911
  3. FRAXIPARINE [Concomitant]
     Active Substance: NADROPARIN CALCIUM
     Route: 065
     Dates: start: 20160727
  4. FILGRASTIM [Concomitant]
     Active Substance: FILGRASTIM
     Indication: NEUTROPHIL COUNT DECREASED
     Route: 065
     Dates: start: 20160829, end: 20160912
  5. MAGNESIUM ISOGLYCYRRHIZINATE [Concomitant]
     Active Substance: MAGNESIUM ISOGLYCYRRHIZINATE
     Indication: ASPARTATE AMINOTRANSFERASE INCREASED
  6. CLOSTRIDIUM BUTYRICUM [Concomitant]
     Active Substance: CLOSTRIDIUM BUTYRICUM SPORES STRAIN M-55
     Indication: DECREASED APPETITE
     Route: 065
     Dates: start: 20160831, end: 20160912
  7. DIAMMONIUM GLYCYRRHIZINATE [Concomitant]
     Active Substance: HERBALS
     Indication: ASPARTATE AMINOTRANSFERASE INCREASED
  8. PETHIDINE [Concomitant]
     Active Substance: MEPERIDINE
     Indication: PAIN
     Route: 065
     Dates: start: 20160727
  9. CEFTRIAXONE. [Concomitant]
     Active Substance: CEFTRIAXONE
     Route: 065
     Dates: start: 20160829, end: 20160831
  10. DIPROPHYLLINE [Concomitant]
     Active Substance: DYPHYLLINE
     Indication: COUGH
     Route: 065
     Dates: start: 20160830, end: 20160830
  11. ATEZOLIZUMAB. [Suspect]
     Active Substance: ATEZOLIZUMAB
     Indication: NON-SMALL CELL LUNG CANCER
     Dosage: DATE OF MOST RECENT DOSE (1200 MG) PRIOR TO SAE ONSET: 16/AUG/2016.?FIXED DOSE AS PER PROTOCOL
     Route: 042
     Dates: start: 20160816
  12. BIFID TRIPLE VIABLE [Concomitant]
     Indication: DECREASED APPETITE
     Route: 065
     Dates: start: 20160901, end: 20160912
  13. METOCLOPRAMIDE DIHYDROCHLORIDE [Concomitant]
     Indication: NAUSEA
     Route: 065
     Dates: start: 20160829, end: 20160829
  14. HYDROCHLOROTHIAZIDE. [Concomitant]
     Active Substance: HYDROCHLOROTHIAZIDE
     Indication: HYPERTENSION
     Route: 065
     Dates: start: 20170423
  15. THYMOPENTIN [Concomitant]
     Active Substance: THYMOPENTIN
     Route: 065
     Dates: start: 20160727
  16. OXYTETRACYCLINE [Concomitant]
     Active Substance: OXYTETRACYCLINE
     Indication: COUGH
     Route: 065
     Dates: start: 20160824, end: 20160824
  17. PIPERACILLIN [Concomitant]
     Active Substance: PIPERACILLIN
     Indication: TONSILLITIS
     Route: 065
     Dates: start: 20160831, end: 20160906
  18. ESOMEPRAZOLE SODIUM. [Concomitant]
     Active Substance: ESOMEPRAZOLE SODIUM
     Indication: DECREASED APPETITE
     Route: 065
     Dates: start: 20160830, end: 20160830
  19. LANSOPRAZOLE. [Concomitant]
     Active Substance: LANSOPRAZOLE
     Indication: DECREASED APPETITE
     Route: 065
     Dates: start: 20160901, end: 20160901
  20. HYDRAZINE SULFATE [Concomitant]
     Active Substance: HYDRAZINE SULFATE
     Indication: HYPERTENSION
     Route: 065
     Dates: start: 20170423
  21. SODIUM CHLORIDE. [Concomitant]
     Active Substance: SODIUM CHLORIDE
     Indication: BLOOD SODIUM DECREASED
     Route: 065
     Dates: start: 20160829, end: 20160911
  22. SHENQI FUZHENG [Concomitant]
     Route: 065
     Dates: start: 20160727
  23. POTASSIUM CHLORIDE. [Concomitant]
     Active Substance: POTASSIUM CHLORIDE
     Indication: BLOOD POTASSIUM DECREASED
     Route: 065
     Dates: start: 20160901, end: 20160912
  24. AMINOMETHYLBENZOIC ACID [Concomitant]
     Active Substance: AMINOMETHYLBENZOIC ACID
     Indication: PLATELET COUNT DECREASED
     Route: 065
     Dates: start: 20160901, end: 20160901
  25. METOCLOPRAMIDE DIHYDROCHLORIDE [Concomitant]
     Indication: VOMITING
  26. PSEUDOEPHEDRINE HYDROCHLORIDE. [Concomitant]
     Active Substance: PSEUDOEPHEDRINE HYDROCHLORIDE
     Indication: NASOPHARYNGITIS
     Route: 065
     Dates: start: 20160828, end: 20160828
  27. RECOMBINANT HUMAN THROMBOPOIETIN [Concomitant]
     Active Substance: THROMBOPOIETIN
     Indication: PLATELET COUNT DECREASED
     Route: 065
     Dates: start: 20160831, end: 20160901
  28. ETAMSYLATE [Concomitant]
     Active Substance: ETHAMSYLATE
     Indication: PLATELET COUNT DECREASED
     Route: 065
     Dates: start: 20160901, end: 20160901
  29. DIAMMONIUM GLYCYRRHIZINATE [Concomitant]
     Active Substance: HERBALS
     Indication: ALANINE AMINOTRANSFERASE INCREASED
     Dosage: ENTERIC-COATED CAPSULES
     Route: 065
     Dates: start: 20160831, end: 20160831
  30. FUDOSTEINE [Concomitant]
     Active Substance: FUDOSTEINE
     Indication: COUGH
     Route: 065
     Dates: start: 20160831, end: 20170223
  31. RESERPINE. [Concomitant]
     Active Substance: RESERPINE
     Indication: HYPERTENSION
     Route: 065
     Dates: start: 20170423
  32. TRIAMTERENE. [Concomitant]
     Active Substance: TRIAMTERENE
     Indication: HYPERTENSION
     Route: 065
     Dates: start: 20170423
  33. CHLORHEXIDINE GLUCONATE. [Concomitant]
     Active Substance: CHLORHEXIDINE GLUCONATE
     Route: 065
     Dates: start: 20160831, end: 20160831

REACTIONS (2)
  - Febrile neutropenia [Recovered/Resolved]
  - Diarrhoea [Recovered/Resolved]

NARRATIVE: CASE EVENT DATE: 20160826
